FAERS Safety Report 16717618 (Version 2)
Quarter: 2019Q4

REPORT INFORMATION
  Report Type: Spontaneous
  Country: ID (occurrence: ID)
  Receive Date: 20190819
  Receipt Date: 20191211
  Transmission Date: 20200122
  Serious: Yes (Other)
  Sender: FDA-Public Use
  Company Number: ID-AMERICAN REGENT INC-2019001790

PATIENT
  Sex: Female

DRUGS (1)
  1. VENOFER [Suspect]
     Active Substance: IRON SUCROSE
     Indication: EYE IRRITATION
     Dosage: 2 DOSAGE FORM, 1 IN 2 D
     Route: 042
     Dates: start: 20190801, end: 20190805

REACTIONS (5)
  - Maternal exposure during pregnancy [Unknown]
  - Product use in unapproved indication [Unknown]
  - Administration site bruise [Unknown]
  - Administration site pain [Unknown]
  - Administration site discolouration [Unknown]

NARRATIVE: CASE EVENT DATE: 20190801
